FAERS Safety Report 10996933 (Version 1)
Quarter: 2015Q1

REPORT INFORMATION
  Report Type: Spontaneous
  Country: US (occurrence: None)
  Receive Date: 20150330
  Receipt Date: 20150330
  Transmission Date: 20150721
  Serious: Yes (Other)
  Sender: FDA-Public Use
  Company Number: 2014TUS006757

PATIENT
  Age: 53 Year
  Sex: Male
  Weight: 72.6 kg

DRUGS (2)
  1. SUCRALFATE. [Concomitant]
     Active Substance: SUCRALFATE
  2. DEXILANT [Suspect]
     Active Substance: DEXLANSOPRAZOLE
     Indication: PRODUCT USED FOR UNKNOWN INDICATION
     Route: 048
     Dates: start: 20140722, end: 20140724

REACTIONS (4)
  - Throat tightness [None]
  - Swelling face [None]
  - Abdominal pain [None]
  - Dyspnoea [None]

NARRATIVE: CASE EVENT DATE: 20140722
